FAERS Safety Report 6807749-1 (Version None)
Quarter: 2010Q2

REPORT INFORMATION
  Report Type: 
  Country: None (occurrence: None)
  Receive Date: 20100629
  Receipt Date: 20090225
  Transmission Date: 20101027
  Serious: No
  Sender: FDA-Public Use
  Company Number: US-PFIZER INC-2008099799

PATIENT
  Sex: Male
  Weight: 84.1 kg

DRUGS (3)
  1. XANAX [Suspect]
     Dates: start: 20010109
  2. ATENOLOL [Concomitant]
  3. CARISOPRODOL [Concomitant]

REACTIONS (1)
  - DRUG INEFFECTIVE [None]
